FAERS Safety Report 6583530-6 (Version None)
Quarter: 2010Q1

REPORT INFORMATION
  Report Type: 
  Country: None (occurrence: None)
  Receive Date: 20100216
  Receipt Date: 20100208
  Transmission Date: 20100710
  Serious: Yes (Hospitalization, Other)
  Sender: FDA-Public Use
  Company Number: PHHO2009US15649

PATIENT
  Sex: Male
  Weight: 72.8 kg

DRUGS (10)
  1. AFINITOR [Suspect]
     Indication: SARCOMA
     Dosage: 10MG/ DAY
     Dates: start: 20090810, end: 20091211
  2. AFINITOR [Suspect]
     Dosage: NO TREATMENT
     Dates: start: 20091212, end: 20091222
  3. AFINITOR [Suspect]
     Dosage: 10MG/ DAY
     Dates: start: 20091223, end: 20100111
  4. ATIVAN [Concomitant]
  5. CELEXA [Concomitant]
  6. CITALOPRAM [Concomitant]
  7. PREDNISONE [Concomitant]
  8. LORAZEPAM [Concomitant]
  9. OMEPRAZOLE [Concomitant]
  10. PRILOSEC [Concomitant]

REACTIONS (16)
  - ABDOMINAL PAIN [None]
  - ABDOMINAL PAIN UPPER [None]
  - ANXIETY [None]
  - CHOLELITHIASIS [None]
  - DYSPNOEA [None]
  - EPIGASTRIC DISCOMFORT [None]
  - ERYTHEMA [None]
  - FLATULENCE [None]
  - GASTROENTERITIS [None]
  - HYPERVENTILATION [None]
  - HYPOPHAGIA [None]
  - MALAISE [None]
  - NAUSEA [None]
  - NORMOCHROMIC NORMOCYTIC ANAEMIA [None]
  - PYREXIA [None]
  - VOMITING [None]
